FAERS Safety Report 8766178 (Version 1)
Quarter: 2012Q4

REPORT INFORMATION
  Report Type: 
  Country: CN (occurrence: CN)
  Receive Date: 20120904
  Receipt Date: 20120904
  Transmission Date: 20130627
  Serious: Yes (Hospitalization)
  Sender: FDA-Public Use
  Company Number: CN-ASTRAZENECA-2012SE64120

PATIENT
  Age: 19 Year
  Sex: Male
  Weight: 45 kg

DRUGS (2)
  1. ESOMEPRAZOLE MAGNESIUM [Suspect]
     Indication: ENTERITIS
     Route: 048
     Dates: start: 20110208, end: 20110214
  2. ESOMEPRAZOLE SODIUM [Suspect]
     Indication: ENTERITIS
     Route: 042
     Dates: start: 20110208, end: 20110214

REACTIONS (2)
  - Liver injury [Recovering/Resolving]
  - Pyrexia [Recovering/Resolving]
